FAERS Safety Report 6535148-9 (Version None)
Quarter: 2010Q1

REPORT INFORMATION
  Report Type: 
  Country: None (occurrence: None)
  Receive Date: 20100113
  Receipt Date: 20100106
  Transmission Date: 20100710
  Serious: Yes (Other)
  Sender: FDA-Public Use
  Company Number: US-RB-000278-10

PATIENT
  Age: 71 Year
  Sex: Female

DRUGS (2)
  1. MUCINEX DM [Suspect]
     Indication: SINUS CONGESTION
     Dosage: TOOK ONE TABLET PER DOSE 6 HOURS APART (2 OR 3 TABLETS IN A DAY) FOR 4 OR 5 DAYS
     Route: 048
  2. MUCINEX DM [Suspect]
     Indication: COUGH
     Dosage: TOOK ONE TABLET PER DOSE 6 HOURS APART (2 OR 3 TABLETS IN A DAY) FOR 4 OR 5 DAYS
     Route: 048

REACTIONS (2)
  - BLOOD PRESSURE INCREASED [None]
  - EXPIRED DRUG ADMINISTERED [None]
